FAERS Safety Report 4277763-1 (Version None)
Quarter: 2004Q1

REPORT INFORMATION
  Report Type: 
  Country: None (occurrence: None)
  Receive Date: 20040121
  Receipt Date: 20040112
  Transmission Date: 20041129
  Serious: Yes (Hospitalization, Other)
  Sender: FDA-Public Use
  Company Number: 2004002342

PATIENT
  Age: 53 Year
  Sex: Female
  Weight: 58 kg

DRUGS (3)
  1. LIPITOR [Suspect]
     Indication: HYPERCHOLESTEROLAEMIA
     Dosage: ORAL
     Route: 048
     Dates: start: 20010101, end: 20031022
  2. ACETYLSALICYLIC ACID SRT [Concomitant]
  3. CEFACLOR [Concomitant]

REACTIONS (3)
  - EOSINOPHILIA [None]
  - HEPATITIS CHOLESTATIC [None]
  - PYREXIA [None]
